APPROVED DRUG PRODUCT: CHLORDIAZEPOXIDE HYDROCHLORIDE AND CLIDINIUM BROMIDE
Active Ingredient: CHLORDIAZEPOXIDE HYDROCHLORIDE; CLIDINIUM BROMIDE
Strength: 5MG;2.5MG
Dosage Form/Route: CAPSULE;ORAL
Application: A214698 | Product #001 | TE Code: AB
Applicant: DR REDDYS LABORATORIES LTD
Approved: May 10, 2021 | RLD: No | RS: No | Type: RX